FAERS Safety Report 8062127-5 (Version None)
Quarter: 2012Q1

REPORT INFORMATION
  Report Type: 
  Country: None (occurrence: None)
  Receive Date: 20120123
  Receipt Date: 20120110
  Transmission Date: 20120608
  Serious: Yes (Hospitalization, Other)
  Sender: FDA-Public Use
  Company Number: US-ELI_LILLY_AND_COMPANY-US201106006456

PATIENT
  Sex: Female
  Weight: 70.794 kg

DRUGS (24)
  1. HYDROCODONE BITARTRATE AND ACETAMINOPHEN [Concomitant]
  2. METOCLOPRAMIDE [Concomitant]
  3. NAPROXEN [Concomitant]
  4. FORTEO [Suspect]
     Indication: OSTEOPOROSIS
     Dosage: 20 UG, QD
     Route: 058
  5. OMEPRAZOLE [Concomitant]
  6. METOPROLOL TARTRATE [Concomitant]
  7. LIDOCAINE [Concomitant]
  8. METHOTREXATE [Concomitant]
  9. MYCOPHENOLATE MOFETIL (CELLCEPT) [Concomitant]
     Dosage: 500 MG, UNK
  10. PREDNISONE TAB [Concomitant]
  11. TRAMADOL HCL [Concomitant]
  12. POTASSIUM CHLORIDE [Concomitant]
  13. FORTEO [Suspect]
     Dosage: 20 UG, QD
     Route: 058
  14. FORTEO [Suspect]
     Dosage: 20 UG, QD
     Route: 058
     Dates: end: 20111201
  15. INSULIN [Concomitant]
  16. HYDROXYCHLOROQUINE SULFATE [Concomitant]
  17. KLOR-CON [Concomitant]
  18. METFORMIN [Concomitant]
  19. GABAPENTIN [Concomitant]
  20. PLAQUENIL [Concomitant]
  21. ANTIBIOTICS [Concomitant]
  22. LEVETIRACETAM [Concomitant]
  23. CALCIUM +VIT D [Concomitant]
  24. ONDANSETRON [Concomitant]

REACTIONS (22)
  - DIARRHOEA [None]
  - HOSPITALISATION [None]
  - LOSS OF CONSCIOUSNESS [None]
  - SPINAL COLUMN STENOSIS [None]
  - PAIN IN EXTREMITY [None]
  - MYOSITIS [None]
  - ABDOMINAL PAIN UPPER [None]
  - PNEUMONIA [None]
  - ADVERSE REACTION [None]
  - INTENTIONAL DRUG MISUSE [None]
  - PAIN [None]
  - DIZZINESS [None]
  - NAUSEA [None]
  - KIDNEY INFECTION [None]
  - HEADACHE [None]
  - URINARY TRACT INFECTION [None]
  - SCREAMING [None]
  - SALIVARY HYPERSECRETION [None]
  - AMNESIA [None]
  - CYSTITIS [None]
  - MALAISE [None]
  - VOMITING [None]
